FAERS Safety Report 14342897 (Version 1)
Quarter: 2017Q4

REPORT INFORMATION
  Report Type: Spontaneous
  Country: US (occurrence: US)
  Receive Date: 20171230
  Receipt Date: 20171230
  Transmission Date: 20180321
  Serious: Yes (Other)
  Sender: FDA-Public Use
  Company Number: None

PATIENT
  Age: 35 Year
  Sex: Female
  Weight: 58.5 kg

DRUGS (7)
  1. ZOLPIDEM [Concomitant]
     Active Substance: ZOLPIDEM\ZOLPIDEM TARTRATE
  2. ADDERALL [Concomitant]
     Active Substance: AMPHETAMINE ASPARTATE\AMPHETAMINE SULFATE\DEXTROAMPHETAMINE SACCHARATE\DEXTROAMPHETAMINE SULFATE
  3. CLONAZEPAM. [Concomitant]
     Active Substance: CLONAZEPAM
  4. ACETAMINOPHEN. [Concomitant]
     Active Substance: ACETAMINOPHEN
  5. LAMOTRIGINE. [Concomitant]
     Active Substance: LAMOTRIGINE
  6. VIIBRYD [Suspect]
     Active Substance: VILAZODONE HYDROCHLORIDE
     Indication: DEPRESSION
     Dosage: ?          QUANTITY:1 TABLET(S);?
     Route: 048
  7. IBUPROFEN. [Concomitant]
     Active Substance: IBUPROFEN

REACTIONS (6)
  - Rheumatoid arthritis [None]
  - Arthralgia [None]
  - Depression [None]
  - Eating disorder [None]
  - Muscle spasms [None]
  - Joint crepitation [None]

NARRATIVE: CASE EVENT DATE: 20170705
